FAERS Safety Report 9102491 (Version 2)
Quarter: 2013Q2

REPORT INFORMATION
  Report Type: Report from Study
  Country: JP (occurrence: JP)
  Receive Date: 20130219
  Receipt Date: 20130401
  Transmission Date: 20140414
  Serious: Yes (Hospitalization)
  Sender: FDA-Public Use
  Company Number: JP-ASTELLAS-2013JP001681

PATIENT
  Age: 64 Year
  Sex: Male
  Weight: 87 kg

DRUGS (2)
  1. MIRABEGRON [Suspect]
     Indication: HYPERTONIC BLADDER
     Dosage: 50 MG, UID/QD
     Route: 048
     Dates: start: 20121010, end: 20130109
  2. URIEF [Concomitant]
     Indication: PROPHYLAXIS
     Dosage: 8 MG, UNKNOWN/D
     Route: 048
     Dates: end: 20130109

REACTIONS (2)
  - Cardiac failure [Recovering/Resolving]
  - Oedema peripheral [Recovering/Resolving]
